FAERS Safety Report 7217685-7 (Version None)
Quarter: 2011Q1

REPORT INFORMATION
  Report Type: 
  Country: None (occurrence: None)
  Receive Date: 20110110
  Receipt Date: 20110105
  Transmission Date: 20110831
  Serious: Yes (Hospitalization)
  Sender: FDA-Public Use
  Company Number: JP-ROCHE-752029

PATIENT
  Sex: Male

DRUGS (2)
  1. BLINDED TOCILIZUMAB [Suspect]
     Route: 042
     Dates: start: 20100622
  2. BLINDED TOCILIZUMAB [Suspect]
     Indication: RHEUMATOID ARTHRITIS
     Route: 058
     Dates: start: 20100622

REACTIONS (1)
  - DEEP VEIN THROMBOSIS [None]
